FAERS Safety Report 6728674-0 (Version None)
Quarter: 2010Q2

REPORT INFORMATION
  Report Type: 
  Country: None (occurrence: None)
  Receive Date: 20100517
  Receipt Date: 20100507
  Transmission Date: 20101027
  Serious: Yes (Life-Threatening, Hospitalization)
  Sender: FDA-Public Use
  Company Number: IE-ABBOTT-10P-229-0637557-00

PATIENT
  Weight: 55 kg

DRUGS (10)
  1. HUMIRA [Suspect]
     Indication: PSORIASIS
     Route: 058
     Dates: start: 20100225
  2. HUMIRA [Suspect]
     Indication: HIDRADENITIS
     Route: 058
     Dates: start: 20100304, end: 20100318
  3. GALFER [Concomitant]
     Indication: ANAEMIA
     Route: 048
     Dates: end: 20100325
  4. ATROXIN [Concomitant]
     Indication: HYPOTHYROIDISM
     Route: 048
  5. CUBITAN [Concomitant]
     Indication: NUTRITIONAL SUPPORT
     Route: 048
  6. CALCICHEW [Concomitant]
     Indication: OSTEOPENIA
     Route: 048
     Dates: end: 20100325
  7. LANOXIN [Concomitant]
     Indication: ATRIAL FIBRILLATION
     Route: 048
  8. EMCOR [Concomitant]
     Indication: HYPERTENSION
     Route: 048
     Dates: end: 20100325
  9. NUSEALS ASPIRN [Concomitant]
     Indication: MYOCARDIAL INFARCTION
     Route: 048
     Dates: end: 20100325
  10. NUSEALS ASPIRN [Concomitant]
     Indication: ATRIAL FIBRILLATION

REACTIONS (2)
  - JAUNDICE CHOLESTATIC [None]
  - PANCREATIC CARCINOMA METASTATIC [None]
